FAERS Safety Report 10109013 (Version 1)
Quarter: 2014Q2

REPORT INFORMATION
  Report Type: Spontaneous
  Country: US (occurrence: None)
  Receive Date: 20140423
  Receipt Date: 20140423
  Transmission Date: 20141212
  Serious: Yes (Other)
  Sender: FDA-Public Use
  Company Number: FK201401412

PATIENT
  Age: 57 Year
  Sex: Female

DRUGS (5)
  1. GENTAMICIN (MANUFACTURER UNKNOWN) (GENTAMICIN) (GENTAMICIN) [Suspect]
     Indication: ENTEROCOCCAL INFECTION
  2. AMPICILLIN [Suspect]
     Indication: ENTEROCOCCAL INFECTION
  3. QUINUPRISTIN [Suspect]
     Indication: ENTEROCOCCAL INFECTION
  4. DALFOPRISTIN [Suspect]
     Indication: ENTEROCOCCAL INFECTION
  5. VANCOMYCIN (VANCOMYCIN) [Concomitant]

REACTIONS (5)
  - Renal failure acute [None]
  - Tubulointerstitial nephritis [None]
  - Escherichia bacteraemia [None]
  - Staphylococcus test positive [None]
  - Enterococcus test positive [None]
